FAERS Safety Report 17199173 (Version 4)
Quarter: 2020Q1

REPORT INFORMATION
  Report Type: Report from Study
  Country: US (occurrence: US)
  Receive Date: 20191225
  Receipt Date: 20200328
  Transmission Date: 20200409
  Serious: Yes (Other)
  Sender: FDA-Public Use
  Company Number: NVSC2019US079053

PATIENT
  Sex: Female

DRUGS (2)
  1. TREPROSTINIL. [Suspect]
     Active Substance: TREPROSTINIL
     Dosage: 99 NG/KG/MIN
     Route: 042
  2. TREPROSTINIL. [Suspect]
     Active Substance: TREPROSTINIL
     Indication: PULMONARY ARTERIAL HYPERTENSION
     Dosage: 79 NG/KG/MIN
     Route: 042
     Dates: start: 20190801

REACTIONS (6)
  - Ascites [Unknown]
  - Diarrhoea [Unknown]
  - Fluid retention [Unknown]
  - Injection site extravasation [Unknown]
  - Nausea [Unknown]
  - Headache [Unknown]
